FAERS Safety Report 16214032 (Version 2)
Quarter: 2019Q2

REPORT INFORMATION
  Report Type: Spontaneous
  Country: US (occurrence: US)
  Receive Date: 20190418
  Receipt Date: 20190507
  Transmission Date: 20190711
  Serious: Yes (Death, Other)
  Sender: FDA-Public Use
  Company Number: US-GLAXOSMITHKLINE-US2019GSK066548

PATIENT
  Sex: Male

DRUGS (5)
  1. OMEPRAZOLE. [Suspect]
     Active Substance: OMEPRAZOLE
     Indication: PRODUCT USED FOR UNKNOWN INDICATION
     Dosage: 40 MG, QD
     Route: 048
  2. OMEPRAZOLE. [Suspect]
     Active Substance: OMEPRAZOLE
     Dosage: 40 MG, BID
     Route: 048
  3. LANSOPRAZOLE. [Suspect]
     Active Substance: LANSOPRAZOLE
     Indication: PRODUCT USED FOR UNKNOWN INDICATION
     Dosage: 30 MG, QD
     Route: 048
  4. PREVACID [Suspect]
     Active Substance: LANSOPRAZOLE
     Indication: PRODUCT USED FOR UNKNOWN INDICATION
     Dosage: UNK
     Route: 065
  5. PREVACID [Suspect]
     Active Substance: LANSOPRAZOLE
     Indication: PRODUCT USED FOR UNKNOWN INDICATION
     Dosage: 30 MG, QD
     Route: 048

REACTIONS (19)
  - Renal pain [Unknown]
  - Nephropathy [Unknown]
  - Hydronephrosis [Unknown]
  - Calculus urinary [Unknown]
  - Kidney enlargement [Unknown]
  - Renal colic [Unknown]
  - Sepsis [Fatal]
  - Respiratory failure [Fatal]
  - Urinary retention [Unknown]
  - Nephrolithiasis [Unknown]
  - Death [Fatal]
  - Pyelonephritis [Unknown]
  - Dysuria [Unknown]
  - Ureterolithiasis [Unknown]
  - Renal failure [Unknown]
  - Haematuria [Unknown]
  - Multiple organ dysfunction syndrome [Fatal]
  - Acute kidney injury [Fatal]
  - Chronic kidney disease [Unknown]
